FAERS Safety Report 19766089 (Version 1)
Quarter: 2021Q3

REPORT INFORMATION
  Report Type: Spontaneous
  Country: US (occurrence: US)
  Receive Date: 20210827
  Receipt Date: 20210827
  Transmission Date: 20211014
  Serious: Yes (Hospitalization)
  Sender: FDA-Public Use
  Company Number: None

PATIENT
  Age: 52 Year
  Sex: Female

DRUGS (1)
  1. DEFERASIROX 360 MG XIROMED [Suspect]
     Active Substance: DEFERASIROX
     Route: 048

REACTIONS (1)
  - Transfusion [None]

NARRATIVE: CASE EVENT DATE: 20210816
